FAERS Safety Report 21254089 (Version 1)
Quarter: 2022Q3

REPORT INFORMATION
  Report Type: Spontaneous
  Country: US (occurrence: None)
  Receive Date: 20220824
  Receipt Date: 20220824
  Transmission Date: 20221027
  Serious: Yes (Other)
  Sender: FDA-Public Use
  Company Number: None

PATIENT
  Age: 38 Year
  Sex: Male
  Weight: 90 kg

DRUGS (1)
  1. IVIZIA DRY EYE [Suspect]
     Active Substance: POVIDONE
     Indication: Dry eye
     Dosage: OTHER QUANTITY : 1 DROP(S);?FREQUENCY : AS NEEDED;?
     Route: 047
     Dates: start: 20220824, end: 20220824

REACTIONS (2)
  - Dizziness [None]
  - Dizziness [None]

NARRATIVE: CASE EVENT DATE: 20220824
